FAERS Safety Report 5127133-9 (Version None)
Quarter: 2006Q4

REPORT INFORMATION
  Report Type: 
  Country: None (occurrence: None)
  Receive Date: 20061013
  Receipt Date: 20061006
  Transmission Date: 20070319
  Serious: Yes (Hospitalization)
  Sender: FDA-Public Use
  Company Number: 2006AP04684

PATIENT
  Age: 85 Year
  Sex: Male

DRUGS (2)
  1. ZOLADEX [Suspect]
     Indication: PROSTATE CANCER
     Route: 058
  2. ESTRACYT [Suspect]
     Route: 048
     Dates: start: 20060926, end: 20060929

REACTIONS (1)
  - INTERSTITIAL LUNG DISEASE [None]
